FAERS Safety Report 7726343-1 (Version None)
Quarter: 2011Q3

REPORT INFORMATION
  Report Type: 
  Country: None (occurrence: None)
  Receive Date: 20110902
  Receipt Date: 20110823
  Transmission Date: 20111222
  Serious: Yes (Other)
  Sender: FDA-Public Use
  Company Number: MW-ABBOTT-10P-100-0641385-00

PATIENT
  Sex: Female
  Weight: 60.5 kg

DRUGS (3)
  1. COMBIVIR [Concomitant]
     Indication: PROPHYLAXIS AGAINST HIV INFECTION
     Dosage: 300/150 MG
     Route: 048
     Dates: start: 20090305, end: 20091130
  2. FERROUS SULFATE TAB [Concomitant]
     Indication: PRODUCT USED FOR UNKNOWN INDICATION
  3. LOPINAVIR/RITONAVIR [Suspect]
     Indication: PROPHYLAXIS AGAINST HIV INFECTION
     Dosage: 400/100 MG
     Route: 048
     Dates: start: 20090305, end: 20091201

REACTIONS (1)
  - STILLBIRTH [None]
